FAERS Safety Report 21846154 (Version 2)
Quarter: 2023Q2

REPORT INFORMATION
  Report Type: Report from Study
  Country: CN (occurrence: CN)
  Receive Date: 20230111
  Receipt Date: 20230407
  Transmission Date: 20230722
  Serious: Yes (Hospitalization, Other)
  Sender: FDA-Public Use
  Company Number: CN-002147023-NVSC2021CN269548

PATIENT
  Age: 74 Year
  Sex: Male
  Weight: 90 kg

DRUGS (5)
  1. ENTRESTO [Suspect]
     Active Substance: SACUBITRIL\VALSARTAN
     Indication: Cardiac failure
     Dosage: 25 MG, BID
     Route: 048
     Dates: start: 20201109
  2. ASPIRIN [Concomitant]
     Active Substance: ASPIRIN
     Indication: Coronary artery disease
     Dosage: 0.1 G
     Route: 065
     Dates: start: 20201106
  3. CALCIUM DOBESILATE [Concomitant]
     Active Substance: CALCIUM DOBESILATE
     Indication: Blood pressure inadequately controlled
     Dosage: 0.5 G, TID
     Route: 048
  4. SPIRONOLACTONE [Concomitant]
     Active Substance: SPIRONOLACTONE
     Indication: Cardiac failure
     Dosage: 20 MG
     Route: 065
     Dates: start: 20201106
  5. METFORMIN HYDROCHLORIDE [Concomitant]
     Active Substance: METFORMIN HYDROCHLORIDE
     Indication: Diabetes mellitus
     Dosage: 1 G
     Route: 065
     Dates: start: 20201106

REACTIONS (27)
  - Cardiac failure [Recovering/Resolving]
  - Chest discomfort [Recovering/Resolving]
  - Dyspnoea [Unknown]
  - Syncope [Recovering/Resolving]
  - Fatigue [Recovering/Resolving]
  - Chest pain [Recovering/Resolving]
  - Dyspnoea paroxysmal nocturnal [Recovering/Resolving]
  - Cough [Recovering/Resolving]
  - Productive cough [Recovering/Resolving]
  - Increased viscosity of bronchial secretion [Recovering/Resolving]
  - Peripheral swelling [Unknown]
  - Joint swelling [Unknown]
  - Congestive hepatopathy [Recovering/Resolving]
  - Hypothyroidism [Recovering/Resolving]
  - Cardiac dysfunction [Recovering/Resolving]
  - Retinopathy hypertensive [Recovering/Resolving]
  - Cataract [Recovering/Resolving]
  - Hepatic ischaemia [Recovering/Resolving]
  - Hepatic necrosis [Recovering/Resolving]
  - Hypoxia [Recovering/Resolving]
  - Hepatotoxicity [Recovering/Resolving]
  - Ocular discomfort [Recovering/Resolving]
  - Liver disorder [Recovering/Resolving]
  - Acid base balance abnormal [Recovering/Resolving]
  - Respiratory acidosis [Recovering/Resolving]
  - Hyperlactacidaemia [Recovering/Resolving]
  - Off label use [Unknown]

NARRATIVE: CASE EVENT DATE: 20201109
